FAERS Safety Report 24706252 (Version 2)
Quarter: 2024Q4

REPORT INFORMATION
  Report Type: Report from Study
  Country: DE (occurrence: DE)
  Receive Date: 20241206
  Receipt Date: 20241210
  Transmission Date: 20250114
  Serious: No
  Sender: NOVARTIS
  Company Number: DE-002147023-NVSC2021DE277550

PATIENT
  Sex: Female

DRUGS (1)
  1. COSENTYX [Suspect]
     Active Substance: SECUKINUMAB
     Indication: Psoriatic arthropathy
     Dosage: UNK (ROUTE: INJECTION NOS)
     Route: 065

REACTIONS (11)
  - COVID-19 [Unknown]
  - Chalazion [Unknown]
  - Urinary tract infection [Unknown]
  - Nasal herpes [Unknown]
  - Nasopharyngitis [Unknown]
  - Oral herpes [Unknown]
  - Lipoma [Unknown]
  - Eye inflammation [Unknown]
  - Oral herpes [Unknown]
  - Nasal herpes [Unknown]
  - Influenza like illness [Unknown]

NARRATIVE: CASE EVENT DATE: 20210515
